FAERS Safety Report 13301990 (Version 1)
Quarter: 2017Q1

REPORT INFORMATION
  Report Type: Spontaneous
  Country: US (occurrence: US)
  Receive Date: 20170307
  Receipt Date: 20170307
  Transmission Date: 20170428
  Serious: No
  Sender: FDA-Public Use
  Company Number: US-CELGENEUS-USA-2017029047

PATIENT
  Age: 45 Year
  Sex: Male

DRUGS (1)
  1. OTEZLA [Suspect]
     Active Substance: APREMILAST
     Indication: PRODUCT USED FOR UNKNOWN INDICATION
     Dosage: 30 MILLIGRAM EVERY AM 10 MILLIGRAM EVERY PM
     Route: 048
     Dates: start: 20170213

REACTIONS (3)
  - Irritability [Unknown]
  - Paranoia [Unknown]
  - Depression [Unknown]

NARRATIVE: CASE EVENT DATE: 20170225
